FAERS Safety Report 4634880-1 (Version None)
Quarter: 2005Q2

REPORT INFORMATION
  Report Type: 
  Country: None (occurrence: None)
  Receive Date: 20050412
  Receipt Date: 20050222
  Transmission Date: 20051028
  Serious: Yes (Other)
  Sender: FDA-Public Use
  Company Number: 200510758

PATIENT
  Age: 82 Year
  Sex: Female

DRUGS (7)
  1. ASPIRIN [Suspect]
     Dosage: 100 MG, TOTAL DIALY, ORAL
     Route: 048
     Dates: start: 20050101
  2. MICARDIS [Suspect]
     Dosage: 40 MG, TOTAL DAILY, ORAL
     Route: 048
     Dates: start: 20050101, end: 20050201
  3. LIPITOR [Suspect]
     Dosage: ORAL
     Route: 048
     Dates: start: 20050101, end: 20050201
  4. FAMOTIDINE [Suspect]
     Dosage: ORAL
     Route: 048
     Dates: start: 20050101, end: 20050201
  5. INHIBACE [Suspect]
     Dosage: ORAL
     Route: 048
     Dates: start: 20050101
  6. LASIX [Concomitant]
  7. RENIVACE [Concomitant]

REACTIONS (2)
  - BLOOD CREATININE INCREASED [None]
  - EOSINOPHILIA [None]
